FAERS Safety Report 26014401 (Version 2)
Quarter: 2025Q4

REPORT INFORMATION
  Report Type: Spontaneous
  Country: JP (occurrence: JP)
  Receive Date: 20251108
  Receipt Date: 20251204
  Transmission Date: 20260118
  Serious: Yes (Death)
  Sender: UNITED THERAPEUTICS
  Company Number: JP-UNITED THERAPEUTICS-UNT-2024-012333

PATIENT
  Age: 69 Year
  Sex: Female

DRUGS (2)
  1. TREPROSTINIL [Suspect]
     Active Substance: TREPROSTINIL
     Indication: Pulmonary arterial hypertension
     Dosage: 18 ?G, TID
     Dates: start: 20240416, end: 20240416
  2. TREPROSTINIL [Suspect]
     Active Substance: TREPROSTINIL
     Dosage: 18 ?G, QID
     Dates: start: 20240417

REACTIONS (4)
  - General physical health deterioration [Fatal]
  - Cough [Unknown]
  - Malaise [Not Recovered/Not Resolved]
  - Dizziness [Recovered/Resolved]

NARRATIVE: CASE EVENT DATE: 20240401
